FAERS Safety Report 13455339 (Version 1)
Quarter: 2017Q2

REPORT INFORMATION
  Report Type: Spontaneous
  Country: AT (occurrence: AT)
  Receive Date: 20170418
  Receipt Date: 20170418
  Transmission Date: 20170830
  Serious: Yes (Life-Threatening, Hospitalization)
  Sender: FDA-Public Use
  Company Number: AT-ALLERGAN-1714783US

PATIENT
  Sex: Female
  Weight: 60 kg

DRUGS (16)
  1. CEFEPIM MIP [Interacting]
     Active Substance: CEFEPIME HYDROCHLORIDE
     Indication: KLEBSIELLA INFECTION
     Dosage: 1 DF, TID
     Route: 042
     Dates: start: 20170309, end: 20170319
  2. THYREX [Concomitant]
     Active Substance: LEVOTHYROXINE SODIUM
     Indication: HYPOTHYROIDISM
     Route: 065
  3. TEMESTA [Concomitant]
     Active Substance: LORAZEPAM
     Indication: SLEEP DISORDER
     Route: 065
  4. SPIRONO [Concomitant]
     Indication: CARDIAC FAILURE
     Dosage: 1/2-0-0
     Route: 065
  5. ESCITALOPRAM OXALATE - BP [Suspect]
     Active Substance: ESCITALOPRAM OXALATE
     Indication: DEPRESSION
     Dosage: 1 DF, QD
     Route: 048
     Dates: end: 201703
  6. TRITTICO RETARD [Interacting]
     Active Substance: TRAZODONE HYDROCHLORIDE
     Indication: PRODUCT USED FOR UNKNOWN INDICATION
     Dosage: 100 MG, QD
     Route: 065
     Dates: end: 20170312
  7. LASIX [Concomitant]
     Active Substance: FUROSEMIDE
     Indication: POLYURIA
     Dosage: 1-0-0, IM KH
     Route: 042
  8. NOVALGIN [Concomitant]
     Active Substance: METAMIZOLE SODIUM
     Indication: PAIN
     Dosage: 30-30-30
     Route: 065
  9. MULTIVIT B [Concomitant]
     Indication: VITAMIN B COMPLEX DEFICIENCY
     Route: 042
  10. NEXIUM [Concomitant]
     Active Substance: ESOMEPRAZOLE MAGNESIUM
     Indication: PROPHYLAXIS AGAINST GASTROINTESTINAL ULCER
     Dosage: 1-0-0
     Route: 065
  11. TRITTICO RETARD [Interacting]
     Active Substance: TRAZODONE HYDROCHLORIDE
     Indication: DEPRESSION
     Dosage: 0-0-0-1
     Route: 065
     Dates: start: 20170313, end: 201703
  12. LOVENOX [Concomitant]
     Active Substance: ENOXAPARIN SODIUM
     Indication: THROMBOSIS PROPHYLAXIS
     Dosage: 0-0-1
     Route: 065
  13. CONCOR [Concomitant]
     Active Substance: BISOPROLOL FUMARATE
     Indication: CARDIAC FAILURE
     Dosage: 1-0-1
     Route: 065
  14. TRADOLAN TROPFEN [Interacting]
     Active Substance: TRAMADOL HYDROCHLORIDE
     Indication: PAIN
     Dosage: 10 DROPS, DAILY
     Route: 065
     Dates: start: 20170314, end: 20170316
  15. NEURONTIN [Concomitant]
     Active Substance: GABAPENTIN
     Indication: INTENSIVE CARE UNIT ACQUIRED WEAKNESS
     Route: 065
     Dates: start: 20170307
  16. ANTIFLAT [Concomitant]
     Indication: FLATULENCE
     Route: 065

REACTIONS (3)
  - Drug interaction [Recovered/Resolved]
  - Partial seizures [Recovered/Resolved]
  - Myoclonus [Recovered/Resolved]

NARRATIVE: CASE EVENT DATE: 20170316
